FAERS Safety Report 6970855-5 (Version None)
Quarter: 2010Q3

REPORT INFORMATION
  Report Type: 
  Country: None (occurrence: None)
  Receive Date: 20100908
  Receipt Date: 20100831
  Transmission Date: 20110219
  Serious: Yes (Hospitalization, Disabling)
  Sender: FDA-Public Use
  Company Number: B0658866A

PATIENT
  Sex: Female
  Weight: 12 kg

DRUGS (5)
  1. LAMICTAL [Suspect]
     Indication: EPILEPSY
     Route: 048
     Dates: start: 20100209, end: 20100421
  2. SELENICA R [Concomitant]
     Indication: EPILEPSY
     Dosage: 300MG PER DAY
     Route: 048
     Dates: start: 20090604
  3. MYSTAN [Concomitant]
     Indication: EPILEPSY
     Dosage: 3.2MG PER DAY
     Route: 048
     Dates: start: 20081208
  4. TOPIRAMATE [Concomitant]
     Indication: EPILEPSY
     Dosage: 100MG PER DAY
     Route: 048
     Dates: start: 20090812
  5. ZOVIRAX [Concomitant]
     Indication: PROPHYLAXIS
     Route: 048

REACTIONS (1)
  - ENCEPHALOPATHY [None]
